FAERS Safety Report 22281647 (Version 1)
Quarter: 2023Q2

REPORT INFORMATION
  Report Type: Spontaneous
  Country: MX (occurrence: None)
  Receive Date: 20230504
  Receipt Date: 20230504
  Transmission Date: 20230722
  Serious: Yes (Other)
  Sender: FDA-Public Use
  Company Number: MX-ROCHE-3342715

PATIENT
  Sex: Female
  Weight: 87 kg

DRUGS (4)
  1. TRASTUZUMAB [Suspect]
     Active Substance: TRASTUZUMAB
     Indication: Breast cancer metastatic
     Dosage: DOSE WAS NOT INFORMED FOR 4 CYCLES
     Route: 065
     Dates: start: 20220407
  2. PERTUZUMAB [Suspect]
     Active Substance: PERTUZUMAB
     Indication: Breast cancer metastatic
     Dosage: DOSE WAS NOT INFORMED FOR 8 CYCLES
     Route: 065
     Dates: start: 20220407, end: 20220922
  3. PACLITAXEL [Concomitant]
     Active Substance: PACLITAXEL
     Indication: Product used for unknown indication
     Dosage: DOSE WAS NOT INFORMED FOR 8 CYCLES
     Dates: start: 20220407, end: 20220922
  4. LETROZOLE [Concomitant]
     Active Substance: LETROZOLE
     Indication: Product used for unknown indication
     Route: 048

REACTIONS (1)
  - Metastases to lymph nodes [Unknown]
